FAERS Safety Report 6327157-X (Version None)
Quarter: 2009Q3

REPORT INFORMATION
  Report Type: 
  Country: None (occurrence: None)
  Receive Date: 20090825
  Receipt Date: 20090818
  Transmission Date: 20100115
  Serious: Yes (Hospitalization)
  Sender: FDA-Public Use
  Company Number: B0588444A

PATIENT
  Sex: Female

DRUGS (8)
  1. VALTREX [Suspect]
     Indication: HERPES ZOSTER
     Dosage: 1000MG THREE TIMES PER DAY
     Route: 048
     Dates: start: 20090803, end: 20090809
  2. ZOVIRAX [Suspect]
     Indication: DRUG USE FOR UNKNOWN INDICATION
     Dosage: 200MG FOUR TIMES PER DAY
     Route: 048
     Dates: start: 20090802, end: 20090802
  3. DIOVAN [Concomitant]
     Indication: HYPERTENSION
     Dosage: 80MG PER DAY
     Route: 048
  4. NORVASC [Concomitant]
     Indication: HYPERTENSION
     Dosage: 10MG PER DAY
     Route: 048
  5. ACINON [Concomitant]
     Indication: GASTRITIS
     Dosage: 300MG PER DAY
     Route: 048
  6. URSO 250 [Concomitant]
     Dosage: 300MG PER DAY
     Route: 048
  7. METHYCOBAL [Concomitant]
     Dosage: 3000MCG PER DAY
     Route: 048
  8. MUCOSAL [Concomitant]
     Indication: PRODUCTIVE COUGH
     Route: 048

REACTIONS (4)
  - BLOOD CREATININE INCREASED [None]
  - BLOOD UREA INCREASED [None]
  - BLOOD URIC ACID INCREASED [None]
  - RENAL FAILURE ACUTE [None]
